FAERS Safety Report 4899405-4 (Version None)
Quarter: 2006Q1

REPORT INFORMATION
  Report Type: 
  Country: None (occurrence: None)
  Receive Date: 20060131
  Receipt Date: 20060118
  Transmission Date: 20060701
  Serious: Yes (Hospitalization)
  Sender: FDA-Public Use
  Company Number: JP-2006-000786

PATIENT

DRUGS (1)
  1. BETASERON [Suspect]
     Indication: MULTIPLE SCLEROSIS
     Dosage: SUBCUTANEOUS
     Route: 058

REACTIONS (3)
  - HEPATIC FUNCTION ABNORMAL [None]
  - JAUNDICE [None]
  - LABORATORY TEST ABNORMAL [None]
